FAERS Safety Report 4517354-8 (Version None)
Quarter: 2004Q4

REPORT INFORMATION
  Report Type: 
  Country: None (occurrence: None)
  Receive Date: 20041029
  Receipt Date: 20040721
  Transmission Date: 20050328
  Serious: Yes (Hospitalization)
  Sender: FDA-Public Use
  Company Number: 2004-118672-NL

PATIENT
  Age: 53 Year
  Sex: Female
  Weight: 58.2 kg

DRUGS (9)
  1. NUVARING [Suspect]
     Indication: CONTRACEPTION
     Dosage: DF DAILY VAGINAL
     Route: 067
     Dates: start: 20031030, end: 20040708
  2. NUVARING [Suspect]
     Indication: MENOPAUSAL SYMPTOMS
     Dosage: DF DAILY VAGINAL
     Route: 067
     Dates: start: 20031030, end: 20040708
  3. NUVARING [Suspect]
     Indication: MIGRAINE
     Dosage: DF DAILY VAGINAL
     Route: 067
     Dates: start: 20031030, end: 20040708
  4. CLARITIN [Concomitant]
  5. CELEBREX [Concomitant]
  6. RELPAX [Concomitant]
  7. INDERAL [Concomitant]
  8. TOPAMAX [Concomitant]
  9. COUMADIN [Concomitant]

REACTIONS (2)
  - DEEP VEIN THROMBOSIS [None]
  - ILIAC VEIN THROMBOSIS [None]
